APPROVED DRUG PRODUCT: CLOROTEKAL
Active Ingredient: CHLOROPROCAINE HYDROCHLORIDE
Strength: 50MG/5ML (10MG/ML)
Dosage Form/Route: SOLUTION;INTRATHECAL
Application: N208791 | Product #001
Applicant: B BRAUN MEDICAL INC
Approved: Sep 26, 2017 | RLD: Yes | RS: No | Type: DISCN

PATENTS:
Patent 8969412 | Expires: Sep 5, 2026
Patent 9504666 | Expires: Dec 11, 2033